FAERS Safety Report 19952631 (Version 1)
Quarter: 2021Q4

REPORT INFORMATION
  Report Type: Spontaneous
  Country: IN (occurrence: IN)
  Receive Date: 20211014
  Receipt Date: 20211014
  Transmission Date: 20220303
  Serious: Yes (Hospitalization, Other)
  Sender: FDA-Public Use
  Company Number: IN-LUPIN PHARMACEUTICALS INC.-2021-19540

PATIENT
  Age: 45 Year
  Sex: Male

DRUGS (4)
  1. TRIAMCINOLONE ACETONIDE [Suspect]
     Active Substance: TRIAMCINOLONE ACETONIDE
     Indication: Scleritis
     Dosage: 4 MILLIGRAM (WAS ADMINISTERED ADJACENT TO THE NODULE)
     Route: 057
  2. PREDNISOLONE ACETATE [Concomitant]
     Active Substance: PREDNISOLONE ACETATE
     Indication: Steroid therapy
     Dosage: UNK (SIX TIMES A DAY)
     Route: 061
  3. INDOMETHACIN [Concomitant]
     Active Substance: INDOMETHACIN
     Indication: Drug therapy
     Dosage: 75 MILLIGRAM, BID
     Route: 048
  4. PREDNISOLONE [Concomitant]
     Active Substance: PREDNISOLONE
     Indication: Steroid therapy
     Dosage: 1 MILLIGRAM/KILOGRAM, QD
     Route: 065

REACTIONS (2)
  - Necrosis [Recovered/Resolved]
  - Scleral disorder [Recovered/Resolved]
